FAERS Safety Report 8541581-6 (Version None)
Quarter: 2012Q3

REPORT INFORMATION
  Report Type: 
  Country: None (occurrence: None)
  Receive Date: 20120726
  Receipt Date: 20120720
  Transmission Date: 20120928
  Serious: Yes (Hospitalization)
  Sender: FDA-Public Use
  Company Number: CN-ROCHE-1090876

PATIENT
  Age: 59 Year
  Sex: Female
  Weight: 51 kg

DRUGS (6)
  1. CELLCEPT [Suspect]
     Dosage: 750MG IN MORNING, 500MG IN EVENING
     Route: 048
     Dates: start: 20111209
  2. CELLCEPT [Suspect]
     Indication: RENAL TRANSPLANT
     Route: 048
     Dates: start: 20090107
  3. PROGRAF [Concomitant]
     Route: 048
     Dates: start: 20111209
  4. PREDNISONE [Concomitant]
     Indication: RENAL TRANSPLANT
     Route: 048
     Dates: start: 20090107
  5. PREDNISONE [Concomitant]
     Route: 048
     Dates: start: 20111209
  6. PROGRAF [Concomitant]
     Indication: RENAL TRANSPLANT
     Route: 048
     Dates: start: 20090107

REACTIONS (9)
  - URINE ANALYSIS ABNORMAL [None]
  - YELLOW SKIN [None]
  - VASCULAR GRAFT COMPLICATION [None]
  - DEHYDRATION [None]
  - TRANSPLANT FAILURE [None]
  - BLOOD UREA INCREASED [None]
  - THROMBIN TIME SHORTENED [None]
  - BLOOD GLUCOSE INCREASED [None]
  - PLATELET AGGREGATION DECREASED [None]
